FAERS Safety Report 9108831 (Version 3)
Quarter: 2013Q1

REPORT INFORMATION
  Report Type: Spontaneous
  Country: US (occurrence: US)
  Receive Date: 20130222
  Receipt Date: 20130327
  Transmission Date: 20140127
  Serious: Yes (Death, Hospitalization)
  Sender: FDA-Public Use
  Company Number: US-BAXTER-2013BAX002754

PATIENT
  Age: 60 Year
  Sex: Male

DRUGS (1)
  1. DIANEAL LOW CALCIUM [Suspect]
     Indication: PERITONEAL DIALYSIS
     Route: 033
     Dates: end: 20130218

REACTIONS (6)
  - Sepsis [Fatal]
  - Peritonitis [Fatal]
  - Decubitus ulcer [Not Recovered/Not Resolved]
  - Localised infection [Recovering/Resolving]
  - Fall [Unknown]
  - Pain [Not Recovered/Not Resolved]
